FAERS Safety Report 8021852-2 (Version None)
Quarter: 2012Q1

REPORT INFORMATION
  Report Type: 
  Country: None (occurrence: None)
  Receive Date: 20120104
  Receipt Date: 20111227
  Transmission Date: 20120608
  Serious: Yes (Other)
  Sender: FDA-Public Use
  Company Number: US-BAYER-2011-100951

PATIENT
  Age: 37 Year
  Sex: Female
  Weight: 83.9 kg

DRUGS (3)
  1. CELEXA [Concomitant]
  2. AMBIEN [Concomitant]
  3. DROSPIRENONE AND ETHINYL ESTRADIOL [Suspect]
     Dosage: UNK
     Dates: start: 20090201, end: 20091001

REACTIONS (4)
  - HEPATIC MASS [None]
  - CHEST PAIN [None]
  - PAIN [None]
  - DYSPEPSIA [None]
